FAERS Safety Report 15082945 (Version 1)
Quarter: 2018Q2

REPORT INFORMATION
  Report Type: Spontaneous
  Country: US (occurrence: US)
  Receive Date: 20180628
  Receipt Date: 20180628
  Transmission Date: 20180711
  Serious: No
  Sender: FDA-Public Use
  Company Number: US-GLENMARK PHARMACEUTICALS-2018GMK032554

PATIENT

DRUGS (1)
  1. MUPIROCIN. [Suspect]
     Active Substance: MUPIROCIN
     Indication: STAPHYLOCOCCAL INFECTION
     Dosage: UNK, BID TWICE DAILY FOR 30 DAYS
     Route: 045
     Dates: start: 20180213, end: 20180215

REACTIONS (3)
  - Off label use [Unknown]
  - Incorrect route of drug administration [Unknown]
  - Epistaxis [Unknown]

NARRATIVE: CASE EVENT DATE: 20180213
